FAERS Safety Report 23284681 (Version 1)
Quarter: 2023Q4

REPORT INFORMATION
  Report Type: Spontaneous
  Country: FR (occurrence: FR)
  Receive Date: 20231211
  Receipt Date: 20231211
  Transmission Date: 20240110
  Serious: Yes (Congenital Anomaly, Other)
  Sender: FDA-Public Use
  Company Number: FR-SANDOZ-SDZ2023FR005752

PATIENT

DRUGS (4)
  1. CYCLOPHOSPHAMIDE [Suspect]
     Active Substance: CYCLOPHOSPHAMIDE
     Indication: Breast cancer
     Dosage: UNKNOWN (FOR 3 CYCLES) FROM 4 WEEK GESTATION UNTIL 10 WEEK GESTATION
     Route: 064
  2. PACLITAXEL [Suspect]
     Active Substance: PACLITAXEL
     Indication: Breast cancer
     Dosage: UNKFROM 16 WEEK GESTATION TO 29 WEEK GESTATION
     Route: 064
  3. TRASTUZUMAB [Suspect]
     Active Substance: TRASTUZUMAB
     Indication: Breast cancer
     Dosage: UNKNOWN FROM 16 WEEK GESTATION TO 29 WEEK GESTATION
     Route: 064
  4. EPIRUBICIN [Concomitant]
     Active Substance: EPIRUBICIN
     Indication: Breast cancer
     Dosage: UNKNOWN (FOR 3 CYCLES) FROM 4 WEEK GESTATION UNTIL 10 WEEK GESTATION
     Route: 064

REACTIONS (7)
  - Renal dysplasia [Unknown]
  - Cleft palate [Unknown]
  - Pulmonary hypoplasia [Unknown]
  - Oligohydramnios [Unknown]
  - Renal hypoplasia [Unknown]
  - Foetal malformation [Unknown]
  - Foetal exposure during pregnancy [Unknown]
